FAERS Safety Report 6275111-9 (Version None)
Quarter: 2009Q3

REPORT INFORMATION
  Report Type: 
  Country: None (occurrence: None)
  Receive Date: 20090721
  Receipt Date: 20090710
  Transmission Date: 20100115
  Serious: Yes (Other)
  Sender: FDA-Public Use
  Company Number: PHEH2008US06153

PATIENT
  Sex: Female

DRUGS (1)
  1. ESTRADERM [Suspect]

REACTIONS (12)
  - ANXIETY [None]
  - BREAST CANCER [None]
  - BREAST LUMP REMOVAL [None]
  - DERMATITIS CONTACT [None]
  - DISABILITY [None]
  - EMOTIONAL DISORDER [None]
  - FATIGUE [None]
  - PAIN [None]
  - RADIOTHERAPY [None]
  - RASH PRURITIC [None]
  - SCAR [None]
  - SYNCOPE [None]
